FAERS Safety Report 8381404 (Version 7)
Quarter: 2017Q4

REPORT INFORMATION
  Report Type: Report from Study
  Country: JP (occurrence: JP)
  Receive Date: 20120131
  Receipt Date: 20171025
  Transmission Date: 20180321
  Serious: Yes (Death, Life-Threatening, Hospitalization, Other)
  Sender: FDA-Public Use
  Company Number: PHHY2012JP007218

PATIENT
  Age: 54 Year
  Sex: Male
  Weight: 62 kg

DRUGS (9)
  1. TS-1 [Concomitant]
     Active Substance: GIMERACIL\OTERACIL\TEGAFUR
     Indication: PANCREATIC NEUROENDOCRINE TUMOUR
     Dosage: UNK UKN, UNK
     Route: 048
     Dates: start: 20110127, end: 20110801
  2. TOPOTECIN [Concomitant]
     Active Substance: IRINOTECAN HYDROCHLORIDE
     Indication: PANCREATIC NEUROENDOCRINE TUMOUR
     Dosage: UNK UKN, UNK
     Route: 065
     Dates: start: 20110909, end: 20111001
  3. CISPLATIN. [Concomitant]
     Active Substance: CISPLATIN
     Indication: PANCREATIC NEUROENDOCRINE TUMOUR
     Dosage: UNK UKN, UNK
     Route: 065
     Dates: start: 20110909, end: 20111001
  4. LASIX [Concomitant]
     Active Substance: FUROSEMIDE
     Indication: PANCREATIC NEUROENDOCRINE TUMOUR
     Dosage: 20 MG, UNK
     Route: 048
  5. AFINITOR [Suspect]
     Active Substance: EVEROLIMUS
     Indication: PANCREATIC NEUROENDOCRINE TUMOUR
     Dosage: 10 MG, QD
     Route: 048
     Dates: start: 20111117, end: 20120105
  6. SANDOSTATIN LAR DEPOT [Concomitant]
     Active Substance: OCTREOTIDE ACETATE
     Indication: PANCREATIC NEUROENDOCRINE TUMOUR
     Dosage: 30 MG, UNK
     Route: 030
     Dates: end: 20120105
  7. TAKEPRON [Concomitant]
     Active Substance: LANSOPRAZOLE
     Indication: PANCREATIC NEUROENDOCRINE TUMOUR
     Dosage: 15 MG, UNK
     Route: 048
  8. ALDACTONE [Concomitant]
     Active Substance: SPIRONOLACTONE
     Indication: PANCREATIC NEUROENDOCRINE TUMOUR
     Dosage: 50 MG, UNK
     Route: 048
  9. CPT-11 [Concomitant]
     Active Substance: IRINOTECAN
     Indication: PRODUCT USED FOR UNKNOWN INDICATION
     Dosage: UNK UKN, UNK
     Route: 065

REACTIONS (8)
  - Cholangitis [Recovering/Resolving]
  - Jaundice cholestatic [Fatal]
  - Respiratory failure [Recovered/Resolved]
  - Neoplasm progression [Fatal]
  - Sepsis [Recovering/Resolving]
  - Malignant neoplasm progression [Fatal]
  - Hepatic function abnormal [Fatal]
  - Arrhythmia [Fatal]

NARRATIVE: CASE EVENT DATE: 20120105
